FAERS Safety Report 8187168-9 (Version None)
Quarter: 2012Q1

REPORT INFORMATION
  Report Type: 
  Country: None (occurrence: None)
  Receive Date: 20120302
  Receipt Date: 20120228
  Transmission Date: 20120608
  Serious: Yes (Disabling)
  Sender: FDA-Public Use
  Company Number: GER/UKI/12/0023203

PATIENT
  Age: 91 Year
  Sex: Male
  Weight: 65 kg

DRUGS (8)
  1. MACROGOL (MACROGOL) [Concomitant]
  2. TRIMETHOPRIM [Concomitant]
  3. ACETAMINOPHEN W/ CODEINE [Concomitant]
  4. LANSOPRAZOLE [Concomitant]
  5. DONEPEZIL HCL [Suspect]
     Indication: PRODUCT USED FOR UNKNOWN INDICATION
  6. AMLODIPINE [Suspect]
     Indication: PRODUCT USED FOR UNKNOWN INDICATION
     Dates: start: 20111003, end: 20111128
  7. ASPIRIN [Concomitant]
  8. LISINOPRIL [Concomitant]

REACTIONS (3)
  - PARKINSONISM [None]
  - EXTRAPYRAMIDAL DISORDER [None]
  - URINARY INCONTINENCE [None]
